FAERS Safety Report 8433731-7 (Version None)
Quarter: 2012Q2

REPORT INFORMATION
  Report Type: 
  Country: None (occurrence: None)
  Receive Date: 20120613
  Receipt Date: 20120606
  Transmission Date: 20120825
  Serious: Yes (Hospitalization, Other)
  Sender: FDA-Public Use
  Company Number: US-ELI_LILLY_AND_COMPANY-US201108005031

PATIENT
  Sex: Female

DRUGS (7)
  1. HUMULIN 70/30 [Suspect]
     Dosage: 11 U, UNK
  2. HUMULIN 70/30 [Suspect]
     Dosage: 7 U, EACH MORNING
  3. HUMULIN 70/30 [Suspect]
     Dosage: 12 U, EACH EVENING
  4. HUMULIN 70/30 [Suspect]
     Dosage: UNK, PRN
  5. OXYGEN [Concomitant]
     Dosage: UNK
  6. AMARYL [Concomitant]
     Dosage: UNK
  7. HUMULIN 70/30 [Suspect]
     Indication: TYPE 2 DIABETES MELLITUS
     Dosage: UNK, PRN

REACTIONS (5)
  - CARDIAC FAILURE CONGESTIVE [None]
  - COLON CANCER [None]
  - HYPOAESTHESIA [None]
  - CHRONIC OBSTRUCTIVE PULMONARY DISEASE [None]
  - NEUROPATHY PERIPHERAL [None]
